FAERS Safety Report 7287604-6 (Version None)
Quarter: 2011Q1

REPORT INFORMATION
  Report Type: 
  Country: None (occurrence: None)
  Receive Date: 20110208
  Receipt Date: 20110208
  Transmission Date: 20110831
  Serious: No
  Sender: FDA-Public Use
  Company Number: None

PATIENT
  Sex: Female
  Weight: 61.2356 kg

DRUGS (1)
  1. BENZACLIN [Suspect]
     Indication: ACNE
     Dosage: APPLY TO SKIN NIGHTLY TOP
     Route: 061
     Dates: start: 20090615, end: 20110115

REACTIONS (1)
  - PROCTITIS [None]
